FAERS Safety Report 10638290 (Version 1)
Quarter: 2014Q4

REPORT INFORMATION
  Report Type: Spontaneous
  Country: US (occurrence: None)
  Receive Date: 20141121
  Receipt Date: 20141121
  Transmission Date: 20150529
  Serious: No
  Sender: FDA-Public Use
  Company Number: 163-10004-14093069

PATIENT
  Age: 61 Year
  Sex: Female

DRUGS (5)
  1. TOPAMAX [Concomitant]
     Active Substance: TOPIRAMATE
  2. ZOFRAN [Concomitant]
     Active Substance: ONDANSETRON HYDROCHLORIDE
  3. HYDROCODONE [Concomitant]
     Active Substance: HYDROCODONE
  4. OTEZLA [Suspect]
     Active Substance: APREMILAST
     Indication: PSORIATIC ARTHROPATHY
     Route: 048
  5. CELEBREX [Concomitant]
     Active Substance: CELECOXIB

REACTIONS (5)
  - Nausea [None]
  - Diarrhoea [None]
  - Insomnia [None]
  - Migraine with aura [None]
  - Tachycardia [None]
